FAERS Safety Report 14689637 (Version 1)
Quarter: 2018Q1

REPORT INFORMATION
  Report Type: Spontaneous
  Country: US (occurrence: US)
  Receive Date: 20180328
  Receipt Date: 20180328
  Transmission Date: 20180509
  Serious: Yes (Other)
  Sender: FDA-Public Use
  Company Number: US-ASTRAZENECA-2018SE35668

PATIENT
  Sex: Female

DRUGS (3)
  1. PREVNAR 13 [Concomitant]
     Active Substance: PNEUMOCOCCAL 13-VALENT CONJUGATE VACCINE
     Dates: start: 20180216
  2. ELIQUIS [Concomitant]
     Active Substance: APIXABAN
     Route: 048
  3. BRILINTA [Suspect]
     Active Substance: TICAGRELOR
     Route: 048

REACTIONS (5)
  - Pulmonary embolism [Unknown]
  - Epistaxis [Unknown]
  - Pneumonia pneumococcal [Unknown]
  - Haematochezia [Recovered/Resolved]
  - Wound haemorrhage [Unknown]
